FAERS Safety Report 15951385 (Version 2)
Quarter: 2019Q1

REPORT INFORMATION
  Report Type: Report from Study
  Country: US (occurrence: US)
  Receive Date: 20190211
  Receipt Date: 20190308
  Transmission Date: 20190417
  Serious: Yes (Hospitalization, Other)
  Sender: FDA-Public Use
  Company Number: US-BIOGEN-2019BI00692714

PATIENT
  Age: 57 Year
  Sex: Female

DRUGS (3)
  1. PLEGRIDY [Suspect]
     Active Substance: PEGINTERFERON BETA-1A
     Indication: MULTIPLE SCLEROSIS
     Route: 050
     Dates: start: 20170411
  2. TECFIDERA [Suspect]
     Active Substance: DIMETHYL FUMARATE
     Indication: PRODUCT USED FOR UNKNOWN INDICATION
     Dosage: STARTING DOSE
     Route: 050
  3. TECFIDERA [Suspect]
     Active Substance: DIMETHYL FUMARATE
     Dosage: MAINTENANCE DOSE
     Route: 050

REACTIONS (32)
  - Chemical poisoning [Recovered/Resolved]
  - Hallucination [Unknown]
  - Cerebral disorder [Not Recovered/Not Resolved]
  - Ulcer [Not Recovered/Not Resolved]
  - Headache [Not Recovered/Not Resolved]
  - Road traffic accident [Recovered/Resolved]
  - Memory impairment [Not Recovered/Not Resolved]
  - Gait disturbance [Unknown]
  - Renal injury [Not Recovered/Not Resolved]
  - Blister [Unknown]
  - Chest pain [Not Recovered/Not Resolved]
  - Fibromyalgia [Unknown]
  - Flushing [Unknown]
  - Urticaria [Not Recovered/Not Resolved]
  - Smoke sensitivity [Unknown]
  - Sinus disorder [Unknown]
  - Weight increased [Unknown]
  - Influenza like illness [Unknown]
  - Thyroid disorder [Unknown]
  - Dysphagia [Unknown]
  - Peripheral swelling [Not Recovered/Not Resolved]
  - Neuropathy peripheral [Not Recovered/Not Resolved]
  - Gout [Not Recovered/Not Resolved]
  - Throat irritation [Unknown]
  - Pain [Not Recovered/Not Resolved]
  - Malaise [Unknown]
  - Liver injury [Not Recovered/Not Resolved]
  - Oedema [Not Recovered/Not Resolved]
  - Mobility decreased [Not Recovered/Not Resolved]
  - Eating disorder [Unknown]
  - Cardiovascular symptom [Unknown]
  - Joint swelling [Unknown]

NARRATIVE: CASE EVENT DATE: 20180507
